FAERS Safety Report 8246137-0 (Version None)
Quarter: 2012Q1

REPORT INFORMATION
  Report Type: 
  Country: None (occurrence: None)
  Receive Date: 20120330
  Receipt Date: 20120327
  Transmission Date: 20120608
  Serious: Yes (Disabling, Other)
  Sender: FDA-Public Use
  Company Number: PHHY2009NL28102

PATIENT
  Sex: Male

DRUGS (1)
  1. TOBI [Suspect]
     Dates: end: 20090707

REACTIONS (2)
  - RENAL IMPAIRMENT [None]
  - DEAFNESS [None]
